FAERS Safety Report 6455620-X (Version None)
Quarter: 2009Q4

REPORT INFORMATION
  Report Type: 
  Country: None (occurrence: None)
  Receive Date: 20091125
  Receipt Date: 20090831
  Transmission Date: 20100525
  Serious: No
  Sender: FDA-Public Use
  Company Number: US-ABBOTT-09P-163-0594476-00

PATIENT
  Sex: Male

DRUGS (2)
  1. SIMCOR [Suspect]
     Indication: HIGH DENSITY LIPOPROTEIN DECREASED
     Dosage: 500/20MG
     Route: 048
     Dates: start: 20090701
  2. SIMCOR [Suspect]
     Dosage: 1000/40 MG

REACTIONS (1)
  - BLOOD CHOLESTEROL INCREASED [None]
